FAERS Safety Report 5782857-5 (Version None)
Quarter: 2008Q2

REPORT INFORMATION
  Report Type: 
  Country: None (occurrence: None)
  Receive Date: 20080624
  Receipt Date: 20080620
  Transmission Date: 20081010
  Serious: Yes (Other)
  Sender: FDA-Public Use
  Company Number: US-ALLERGAN-0800385US

PATIENT
  Sex: Female

DRUGS (3)
  1. BOTOX COSMETIC [Suspect]
     Indication: SKIN WRINKLING
     Dosage: 48 UNITS, SINGLE
     Route: 030
     Dates: start: 20071211, end: 20071211
  2. BOTOX COSMETIC [Suspect]
  3. JUVEDERM [Concomitant]
     Indication: SKIN WRINKLING

REACTIONS (1)
  - FACIAL PALSY [None]
